FAERS Safety Report 8187205-1 (Version None)
Quarter: 2012Q1

REPORT INFORMATION
  Report Type: 
  Country: None (occurrence: None)
  Receive Date: 20120302
  Receipt Date: 20110518
  Transmission Date: 20120608
  Serious: Yes (Death)
  Sender: FDA-Public Use
  Company Number: DKLU1070691

PATIENT
  Age: 28 Year
  Sex: Male

DRUGS (8)
  1. AMPHETAMINE SULFATE [Suspect]
  2. THC (CANNABIS SATIVA) [Suspect]
  3. CODEINE SULFATE [Suspect]
  4. MORPHINE [Suspect]
  5. DESOXYN [Suspect]
  6. MDMA (METHYLENEDIOXYMETHAMPHETAMINE) [Suspect]
  7. CITALOPRAM HYDROBROMIDE [Suspect]
  8. 7-AMINOFLUNITRAZEPAM (FLUNITRAZEPAM) [Suspect]

REACTIONS (2)
  - DRUG INTERACTION [None]
  - TOXICITY TO VARIOUS AGENTS [None]
